FAERS Safety Report 4964436-2 (Version None)
Quarter: 2006Q1

REPORT INFORMATION
  Report Type: 
  Country: None (occurrence: None)
  Receive Date: 20060331
  Receipt Date: 20060322
  Transmission Date: 20060701
  Serious: Yes (Other)
  Sender: FDA-Public Use
  Company Number: 2006-03-1761

PATIENT
  Age: 22 Year
  Sex: Male
  Weight: 63 kg

DRUGS (1)
  1. DIPROGENTA CREAM [Suspect]
     Dosage: 1-2X DAILY TOP-DERM
     Route: 061
     Dates: start: 20060317, end: 20060318

REACTIONS (3)
  - BURNING SENSATION [None]
  - PAIN [None]
  - WOUND COMPLICATION [None]
